FAERS Safety Report 7764597-6 (Version None)
Quarter: 2011Q3

REPORT INFORMATION
  Report Type: 
  Country: None (occurrence: None)
  Receive Date: 20110921
  Receipt Date: 20110906
  Transmission Date: 20111222
  Serious: Yes (Hospitalization, Other)
  Sender: FDA-Public Use
  Company Number: PHHY2011BR81095

PATIENT
  Age: 70 Year
  Sex: Female

DRUGS (4)
  1. APRESOLINE [Suspect]
     Indication: ARRHYTHMIA
     Dosage: 1 DF, TID
  2. APRESOLINE [Suspect]
     Indication: ANGINA PECTORIS
  3. DIOVAN [Suspect]
     Indication: ANGINA PECTORIS
  4. DIOVAN [Suspect]
     Indication: ARRHYTHMIA
     Dosage: 1 DF, UNK

REACTIONS (1)
  - VISUAL IMPAIRMENT [None]
